FAERS Safety Report 6834958-8 (Version None)
Quarter: 2010Q3

REPORT INFORMATION
  Report Type: 
  Country: None (occurrence: None)
  Receive Date: 20100713
  Receipt Date: 20100112
  Transmission Date: 20110219
  Serious: Yes (Other)
  Sender: FDA-Public Use
  Company Number: US-ASTRAZENECA-2007UW10711

PATIENT
  Age: 22129 Day
  Sex: Male

DRUGS (6)
  1. SEROQUEL [Suspect]
     Dosage: 40 MG-300 MG TABLETS
     Route: 048
     Dates: start: 20030417
  2. CHANTIX [Concomitant]
     Dates: start: 20080123
  3. CLONAZEPAM [Concomitant]
     Dates: start: 20080123
  4. FLOMAX [Concomitant]
     Dates: start: 20080123
  5. PROZAC [Concomitant]
     Dates: start: 20080123
  6. PERCOCET [Concomitant]
     Dosage: 5/325,1-2 TABLETS P.O. Q 4 HOURS P.R.N
     Route: 048
     Dates: start: 20080123

REACTIONS (3)
  - MULTIPLE INJURIES [None]
  - PANCREATIC NEOPLASM [None]
  - PANCREATITIS [None]
